FAERS Safety Report 7637504-4 (Version None)
Quarter: 2011Q3

REPORT INFORMATION
  Report Type: 
  Country: None (occurrence: None)
  Receive Date: 20110726
  Receipt Date: 20110714
  Transmission Date: 20111222
  Serious: Yes (Hospitalization)
  Sender: FDA-Public Use
  Company Number: PHHY2011US63759

PATIENT

DRUGS (1)
  1. EXELON [Suspect]
     Route: 062

REACTIONS (2)
  - MUSCULAR WEAKNESS [None]
  - UNRESPONSIVE TO STIMULI [None]
